FAERS Safety Report 12094211 (Version 1)
Quarter: 2016Q1

REPORT INFORMATION
  Report Type: Spontaneous
  Country: US (occurrence: US)
  Receive Date: 20160219
  Receipt Date: 20160219
  Transmission Date: 20160526
  Serious: Yes (Other)
  Sender: FDA-Public Use
  Company Number: US-JNJFOC-20160210786

PATIENT

DRUGS (110)
  1. DOXORUBICIN HYDROCHLORIDE. [Suspect]
     Active Substance: DOXORUBICIN HYDROCHLORIDE
     Indication: NON-HODGKIN^S LYMPHOMA
     Route: 065
  2. DAUNORUBICIN [Suspect]
     Active Substance: DAUNORUBICIN
     Indication: CENTRAL NERVOUS SYSTEM NEOPLASM
     Route: 065
  3. DAUNORUBICIN [Suspect]
     Active Substance: DAUNORUBICIN
     Indication: NEPHROBLASTOMA
     Route: 065
  4. EPIRUBICIN [Suspect]
     Active Substance: EPIRUBICIN
     Indication: GERM CELL CANCER
     Route: 065
  5. EPIRUBICIN [Suspect]
     Active Substance: EPIRUBICIN
     Indication: NON-HODGKIN^S LYMPHOMA
     Route: 065
  6. IDARUBICIN [Suspect]
     Active Substance: IDARUBICIN
     Indication: NEOPLASM MALIGNANT
     Route: 065
  7. IDARUBICIN [Suspect]
     Active Substance: IDARUBICIN
     Indication: NEUROBLASTOMA
     Route: 065
  8. IDARUBICIN [Suspect]
     Active Substance: IDARUBICIN
     Indication: SARCOMA
     Route: 065
  9. IDARUBICIN [Suspect]
     Active Substance: IDARUBICIN
     Indication: LEUKAEMIA
     Route: 065
  10. DOXORUBICIN HYDROCHLORIDE. [Suspect]
     Active Substance: DOXORUBICIN HYDROCHLORIDE
     Indication: HEPATIC CANCER
     Route: 065
  11. DOXORUBICIN HYDROCHLORIDE. [Suspect]
     Active Substance: DOXORUBICIN HYDROCHLORIDE
     Indication: NEPHROBLASTOMA
     Route: 065
  12. DOXORUBICIN HYDROCHLORIDE. [Suspect]
     Active Substance: DOXORUBICIN HYDROCHLORIDE
     Indication: LEUKAEMIA
     Route: 065
  13. DAUNORUBICIN [Suspect]
     Active Substance: DAUNORUBICIN
     Indication: NEOPLASM MALIGNANT
     Route: 065
  14. DAUNORUBICIN [Suspect]
     Active Substance: DAUNORUBICIN
     Indication: SARCOMA
     Route: 065
  15. DAUNORUBICIN [Suspect]
     Active Substance: DAUNORUBICIN
     Indication: NON-HODGKIN^S LYMPHOMA
     Route: 065
  16. DAUNORUBICIN [Suspect]
     Active Substance: DAUNORUBICIN
     Indication: LEUKAEMIA
     Route: 065
  17. EPIRUBICIN [Suspect]
     Active Substance: EPIRUBICIN
     Indication: NEOPLASM MALIGNANT
     Route: 065
  18. EPIRUBICIN [Suspect]
     Active Substance: EPIRUBICIN
     Indication: HEPATIC CANCER
     Route: 065
  19. EPIRUBICIN [Suspect]
     Active Substance: EPIRUBICIN
     Indication: NEUROBLASTOMA
     Route: 065
  20. EPIRUBICIN [Suspect]
     Active Substance: EPIRUBICIN
     Indication: LEUKAEMIA
     Route: 065
  21. IDARUBICIN [Suspect]
     Active Substance: IDARUBICIN
     Indication: NEUROBLASTOMA
     Route: 065
  22. MITOXANTRONE [Suspect]
     Active Substance: MITOXANTRONE HYDROCHLORIDE
     Indication: NEUROBLASTOMA
     Route: 065
  23. MITOXANTRONE [Suspect]
     Active Substance: MITOXANTRONE HYDROCHLORIDE
     Indication: NEUROBLASTOMA
     Route: 065
  24. MITOXANTRONE [Suspect]
     Active Substance: MITOXANTRONE HYDROCHLORIDE
     Indication: NEPHROBLASTOMA
     Route: 065
  25. MITOXANTRONE [Suspect]
     Active Substance: MITOXANTRONE HYDROCHLORIDE
     Indication: HODGKIN^S DISEASE
     Route: 065
  26. MITOXANTRONE [Suspect]
     Active Substance: MITOXANTRONE HYDROCHLORIDE
     Indication: HODGKIN^S DISEASE
     Route: 065
  27. DOXORUBICIN HYDROCHLORIDE. [Suspect]
     Active Substance: DOXORUBICIN HYDROCHLORIDE
     Indication: NEOPLASM MALIGNANT
     Route: 065
  28. DOXORUBICIN HYDROCHLORIDE. [Suspect]
     Active Substance: DOXORUBICIN HYDROCHLORIDE
     Indication: NEUROBLASTOMA
     Route: 065
  29. DOXORUBICIN HYDROCHLORIDE. [Suspect]
     Active Substance: DOXORUBICIN HYDROCHLORIDE
     Indication: SARCOMA
     Route: 065
  30. DOXORUBICIN HYDROCHLORIDE. [Suspect]
     Active Substance: DOXORUBICIN HYDROCHLORIDE
     Indication: HODGKIN^S DISEASE
     Route: 065
  31. DAUNORUBICIN [Suspect]
     Active Substance: DAUNORUBICIN
     Indication: RETINOBLASTOMA
     Route: 065
  32. DAUNORUBICIN [Suspect]
     Active Substance: DAUNORUBICIN
     Indication: HEPATIC CANCER
     Route: 065
  33. DAUNORUBICIN [Suspect]
     Active Substance: DAUNORUBICIN
     Indication: NEUROBLASTOMA
     Route: 065
  34. EPIRUBICIN [Suspect]
     Active Substance: EPIRUBICIN
     Indication: HODGKIN^S DISEASE
     Route: 065
  35. IDARUBICIN [Suspect]
     Active Substance: IDARUBICIN
     Indication: HEPATIC CANCER
     Route: 065
  36. IDARUBICIN [Suspect]
     Active Substance: IDARUBICIN
     Indication: CENTRAL NERVOUS SYSTEM NEOPLASM
     Route: 065
  37. IDARUBICIN [Suspect]
     Active Substance: IDARUBICIN
     Indication: HODGKIN^S DISEASE
     Route: 065
  38. MITOXANTRONE [Suspect]
     Active Substance: MITOXANTRONE HYDROCHLORIDE
     Indication: CENTRAL NERVOUS SYSTEM NEOPLASM
     Route: 065
  39. MITOXANTRONE [Suspect]
     Active Substance: MITOXANTRONE HYDROCHLORIDE
     Indication: LEUKAEMIA
     Route: 065
  40. DOXORUBICIN HYDROCHLORIDE. [Suspect]
     Active Substance: DOXORUBICIN HYDROCHLORIDE
     Indication: RETINOBLASTOMA
     Route: 065
  41. DOXORUBICIN HYDROCHLORIDE. [Suspect]
     Active Substance: DOXORUBICIN HYDROCHLORIDE
     Indication: NEPHROBLASTOMA
     Route: 065
  42. DAUNORUBICIN [Suspect]
     Active Substance: DAUNORUBICIN
     Indication: HEPATIC CANCER
     Route: 065
  43. DAUNORUBICIN [Suspect]
     Active Substance: DAUNORUBICIN
     Indication: NEUROBLASTOMA
     Route: 065
  44. EPIRUBICIN [Suspect]
     Active Substance: EPIRUBICIN
     Indication: CENTRAL NERVOUS SYSTEM NEOPLASM
     Route: 065
  45. EPIRUBICIN [Suspect]
     Active Substance: EPIRUBICIN
     Indication: CENTRAL NERVOUS SYSTEM NEOPLASM
     Route: 065
  46. IDARUBICIN [Suspect]
     Active Substance: IDARUBICIN
     Indication: CENTRAL NERVOUS SYSTEM NEOPLASM
     Route: 065
  47. IDARUBICIN [Suspect]
     Active Substance: IDARUBICIN
     Indication: NEPHROBLASTOMA
     Route: 065
  48. MITOXANTRONE [Suspect]
     Active Substance: MITOXANTRONE HYDROCHLORIDE
     Indication: NEPHROBLASTOMA
     Route: 065
  49. MITOXANTRONE [Suspect]
     Active Substance: MITOXANTRONE HYDROCHLORIDE
     Indication: LEUKAEMIA
     Route: 065
  50. DOXORUBICIN HYDROCHLORIDE. [Suspect]
     Active Substance: DOXORUBICIN HYDROCHLORIDE
     Indication: RETINOBLASTOMA
     Route: 065
  51. DOXORUBICIN HYDROCHLORIDE. [Suspect]
     Active Substance: DOXORUBICIN HYDROCHLORIDE
     Indication: GERM CELL CANCER
     Route: 065
  52. DOXORUBICIN HYDROCHLORIDE. [Suspect]
     Active Substance: DOXORUBICIN HYDROCHLORIDE
     Indication: GERM CELL CANCER
     Route: 065
  53. DOXORUBICIN HYDROCHLORIDE. [Suspect]
     Active Substance: DOXORUBICIN HYDROCHLORIDE
     Indication: NEUROBLASTOMA
     Route: 065
  54. DOXORUBICIN HYDROCHLORIDE. [Suspect]
     Active Substance: DOXORUBICIN HYDROCHLORIDE
     Indication: NON-HODGKIN^S LYMPHOMA
     Route: 065
  55. DAUNORUBICIN [Suspect]
     Active Substance: DAUNORUBICIN
     Indication: NEOPLASM MALIGNANT
     Route: 065
  56. DAUNORUBICIN [Suspect]
     Active Substance: DAUNORUBICIN
     Indication: RETINOBLASTOMA
     Route: 065
  57. DAUNORUBICIN [Suspect]
     Active Substance: DAUNORUBICIN
     Indication: SARCOMA
     Route: 065
  58. DAUNORUBICIN [Suspect]
     Active Substance: DAUNORUBICIN
     Indication: NON-HODGKIN^S LYMPHOMA
     Route: 065
  59. DAUNORUBICIN [Suspect]
     Active Substance: DAUNORUBICIN
     Indication: HODGKIN^S DISEASE
     Route: 065
  60. EPIRUBICIN [Suspect]
     Active Substance: EPIRUBICIN
     Indication: RETINOBLASTOMA
     Route: 065
  61. EPIRUBICIN [Suspect]
     Active Substance: EPIRUBICIN
     Indication: NEUROBLASTOMA
     Route: 065
  62. EPIRUBICIN [Suspect]
     Active Substance: EPIRUBICIN
     Indication: NEPHROBLASTOMA
     Route: 065
  63. EPIRUBICIN [Suspect]
     Active Substance: EPIRUBICIN
     Indication: NON-HODGKIN^S LYMPHOMA
     Route: 065
  64. EPIRUBICIN [Suspect]
     Active Substance: EPIRUBICIN
     Indication: HODGKIN^S DISEASE
     Route: 065
  65. EPIRUBICIN [Suspect]
     Active Substance: EPIRUBICIN
     Indication: LEUKAEMIA
     Route: 065
  66. IDARUBICIN [Suspect]
     Active Substance: IDARUBICIN
     Indication: NEOPLASM MALIGNANT
     Route: 065
  67. IDARUBICIN [Suspect]
     Active Substance: IDARUBICIN
     Indication: GERM CELL CANCER
     Route: 065
  68. IDARUBICIN [Suspect]
     Active Substance: IDARUBICIN
     Indication: NEPHROBLASTOMA
     Route: 065
  69. MITOXANTRONE [Suspect]
     Active Substance: MITOXANTRONE HYDROCHLORIDE
     Indication: NEOPLASM MALIGNANT
     Route: 065
  70. MITOXANTRONE [Suspect]
     Active Substance: MITOXANTRONE HYDROCHLORIDE
     Indication: RETINOBLASTOMA
     Route: 065
  71. MITOXANTRONE [Suspect]
     Active Substance: MITOXANTRONE HYDROCHLORIDE
     Indication: HEPATIC CANCER
     Route: 065
  72. MITOXANTRONE [Suspect]
     Active Substance: MITOXANTRONE HYDROCHLORIDE
     Indication: GERM CELL CANCER
     Route: 065
  73. MITOXANTRONE [Suspect]
     Active Substance: MITOXANTRONE HYDROCHLORIDE
     Indication: SARCOMA
     Route: 065
  74. DOXORUBICIN HYDROCHLORIDE. [Suspect]
     Active Substance: DOXORUBICIN HYDROCHLORIDE
     Indication: NEOPLASM MALIGNANT
     Route: 065
  75. DOXORUBICIN HYDROCHLORIDE. [Suspect]
     Active Substance: DOXORUBICIN HYDROCHLORIDE
     Indication: HEPATIC CANCER
     Route: 065
  76. DOXORUBICIN HYDROCHLORIDE. [Suspect]
     Active Substance: DOXORUBICIN HYDROCHLORIDE
     Indication: SARCOMA
     Route: 065
  77. DAUNORUBICIN [Suspect]
     Active Substance: DAUNORUBICIN
     Indication: GERM CELL CANCER
     Route: 065
  78. DAUNORUBICIN [Suspect]
     Active Substance: DAUNORUBICIN
     Indication: CENTRAL NERVOUS SYSTEM NEOPLASM
     Route: 065
  79. DAUNORUBICIN [Suspect]
     Active Substance: DAUNORUBICIN
     Indication: LEUKAEMIA
     Route: 065
  80. EPIRUBICIN [Suspect]
     Active Substance: EPIRUBICIN
     Indication: NEOPLASM MALIGNANT
     Route: 065
  81. EPIRUBICIN [Suspect]
     Active Substance: EPIRUBICIN
     Indication: HEPATIC CANCER
     Route: 065
  82. EPIRUBICIN [Suspect]
     Active Substance: EPIRUBICIN
     Indication: GERM CELL CANCER
     Route: 065
  83. EPIRUBICIN [Suspect]
     Active Substance: EPIRUBICIN
     Indication: SARCOMA
     Route: 065
  84. EPIRUBICIN [Suspect]
     Active Substance: EPIRUBICIN
     Indication: SARCOMA
     Route: 065
  85. IDARUBICIN [Suspect]
     Active Substance: IDARUBICIN
     Indication: RETINOBLASTOMA
     Route: 065
  86. IDARUBICIN [Suspect]
     Active Substance: IDARUBICIN
     Indication: GERM CELL CANCER
     Route: 065
  87. IDARUBICIN [Suspect]
     Active Substance: IDARUBICIN
     Indication: NON-HODGKIN^S LYMPHOMA
     Route: 065
  88. IDARUBICIN [Suspect]
     Active Substance: IDARUBICIN
     Indication: HODGKIN^S DISEASE
     Route: 065
  89. MITOXANTRONE [Suspect]
     Active Substance: MITOXANTRONE HYDROCHLORIDE
     Indication: RETINOBLASTOMA
     Route: 065
  90. MITOXANTRONE [Suspect]
     Active Substance: MITOXANTRONE HYDROCHLORIDE
     Indication: GERM CELL CANCER
     Route: 065
  91. MITOXANTRONE [Suspect]
     Active Substance: MITOXANTRONE HYDROCHLORIDE
     Indication: SARCOMA
     Route: 065
  92. MITOXANTRONE [Suspect]
     Active Substance: MITOXANTRONE HYDROCHLORIDE
     Indication: NON-HODGKIN^S LYMPHOMA
     Route: 065
  93. DOXORUBICIN HYDROCHLORIDE. [Suspect]
     Active Substance: DOXORUBICIN HYDROCHLORIDE
     Indication: HODGKIN^S DISEASE
     Route: 065
  94. DOXORUBICIN HYDROCHLORIDE. [Suspect]
     Active Substance: DOXORUBICIN HYDROCHLORIDE
     Indication: LEUKAEMIA
     Route: 065
  95. DAUNORUBICIN [Suspect]
     Active Substance: DAUNORUBICIN
     Indication: GERM CELL CANCER
     Route: 065
  96. DAUNORUBICIN [Suspect]
     Active Substance: DAUNORUBICIN
     Indication: NEPHROBLASTOMA
     Route: 065
  97. DAUNORUBICIN [Suspect]
     Active Substance: DAUNORUBICIN
     Indication: HODGKIN^S DISEASE
     Route: 065
  98. IDARUBICIN [Suspect]
     Active Substance: IDARUBICIN
     Indication: RETINOBLASTOMA
     Route: 065
  99. IDARUBICIN [Suspect]
     Active Substance: IDARUBICIN
     Indication: HEPATIC CANCER
     Route: 065
  100. IDARUBICIN [Suspect]
     Active Substance: IDARUBICIN
     Indication: SARCOMA
     Route: 065
  101. MITOXANTRONE [Suspect]
     Active Substance: MITOXANTRONE HYDROCHLORIDE
     Indication: HEPATIC CANCER
     Route: 065
  102. DOXORUBICIN HYDROCHLORIDE. [Suspect]
     Active Substance: DOXORUBICIN HYDROCHLORIDE
     Indication: CENTRAL NERVOUS SYSTEM NEOPLASM
     Route: 065
  103. DOXORUBICIN HYDROCHLORIDE. [Suspect]
     Active Substance: DOXORUBICIN HYDROCHLORIDE
     Indication: CENTRAL NERVOUS SYSTEM NEOPLASM
     Route: 065
  104. EPIRUBICIN [Suspect]
     Active Substance: EPIRUBICIN
     Indication: RETINOBLASTOMA
     Route: 065
  105. EPIRUBICIN [Suspect]
     Active Substance: EPIRUBICIN
     Indication: NEPHROBLASTOMA
     Route: 065
  106. IDARUBICIN [Suspect]
     Active Substance: IDARUBICIN
     Indication: NON-HODGKIN^S LYMPHOMA
     Route: 065
  107. IDARUBICIN [Suspect]
     Active Substance: IDARUBICIN
     Indication: LEUKAEMIA
     Route: 065
  108. MITOXANTRONE [Suspect]
     Active Substance: MITOXANTRONE HYDROCHLORIDE
     Indication: NEOPLASM MALIGNANT
     Route: 065
  109. MITOXANTRONE [Suspect]
     Active Substance: MITOXANTRONE HYDROCHLORIDE
     Indication: CENTRAL NERVOUS SYSTEM NEOPLASM
     Route: 065
  110. MITOXANTRONE [Suspect]
     Active Substance: MITOXANTRONE HYDROCHLORIDE
     Indication: NON-HODGKIN^S LYMPHOMA
     Route: 065

REACTIONS (12)
  - Mitral valve stenosis [Unknown]
  - Coronary artery disease [Unknown]
  - Aortic valve incompetence [Unknown]
  - Mitral valve disease [Unknown]
  - Product use issue [Unknown]
  - Cardiomyopathy [Unknown]
  - Aortic valve sclerosis [Unknown]
  - Conduction disorder [Unknown]
  - Aortic stenosis [Unknown]
  - Tricuspid valve incompetence [Unknown]
  - Mitral valve incompetence [Unknown]
  - Off label use [Unknown]
